FAERS Safety Report 7530218-0 (Version None)
Quarter: 2011Q2

REPORT INFORMATION
  Report Type: 
  Country: None (occurrence: None)
  Receive Date: 20110607
  Receipt Date: 20110524
  Transmission Date: 20111010
  Serious: Yes (Hospitalization, Disabling)
  Sender: FDA-Public Use
  Company Number: JP-JNJFOC-20100908738

PATIENT
  Age: 60 Year
  Sex: Male
  Weight: 73 kg

DRUGS (15)
  1. REMICADE [Suspect]
     Route: 042
     Dates: start: 20100526
  2. REMICADE [Suspect]
     Route: 042
     Dates: start: 20101015
  3. PREDNISOLONE [Concomitant]
     Route: 048
     Dates: start: 20100311, end: 20100512
  4. DOVONEX [Concomitant]
     Indication: PSORIATIC ARTHROPATHY
     Dates: start: 20100311
  5. ANTEBATE [Concomitant]
     Indication: PSORIATIC ARTHROPATHY
     Dates: start: 20100311
  6. REMICADE [Suspect]
     Indication: PSORIATIC ARTHROPATHY
     Route: 042
     Dates: start: 20100625
  7. PREDNISOLONE [Concomitant]
     Route: 048
     Dates: start: 20100225, end: 20100310
  8. REMICADE [Suspect]
     Route: 042
     Dates: start: 20100512
  9. PREDNISOLONE [Concomitant]
     Route: 048
     Dates: start: 20100624, end: 20100721
  10. RABEPRAZOLE SODIUM [Concomitant]
     Indication: PROPHYLAXIS
     Route: 048
     Dates: start: 20100225, end: 20100915
  11. ISONIAZID [Concomitant]
     Indication: ANTIBIOTIC PROPHYLAXIS
     Route: 048
     Dates: start: 20100416, end: 20100630
  12. PREDNISOLONE [Concomitant]
     Indication: PSORIATIC ARTHROPATHY
     Route: 048
     Dates: start: 20100722, end: 20100915
  13. PREDNISOLONE [Concomitant]
     Route: 048
     Dates: start: 20100513, end: 20100623
  14. REMICADE [Suspect]
     Route: 042
     Dates: start: 20100820
  15. OLOPATADINE HCL [Concomitant]
     Indication: PSORIATIC ARTHROPATHY
     Route: 048
     Dates: start: 20100311

REACTIONS (4)
  - POST HERPETIC NEURALGIA [None]
  - CONSTIPATION [None]
  - HEPATIC FUNCTION ABNORMAL [None]
  - HERPES ZOSTER [None]
